FAERS Safety Report 5045681-7 (Version None)
Quarter: 2006Q3

REPORT INFORMATION
  Report Type: 
  Country: None (occurrence: None)
  Receive Date: 20060707
  Receipt Date: 20060530
  Transmission Date: 20061208
  Serious: Yes (Hospitalization)
  Sender: FDA-Public Use
  Company Number: US-MERCK-0605USA05113

PATIENT
  Age: 73 Year
  Sex: Female

DRUGS (3)
  1. PRINIVIL [Suspect]
     Route: 048
     Dates: end: 20060501
  2. NORVASC [Concomitant]
     Route: 065
  3. ZESTRIL [Suspect]
     Route: 065

REACTIONS (1)
  - OROPHARYNGEAL SPASM [None]
